FAERS Safety Report 19865188 (Version 1)
Quarter: 2021Q3

REPORT INFORMATION
  Report Type: Spontaneous
  Country: US (occurrence: US)
  Receive Date: 20210921
  Receipt Date: 20210921
  Transmission Date: 20211014
  Serious: No
  Sender: FDA-Public Use
  Company Number: US-PFIZER INC-2021890376

PATIENT
  Age: 53 Year
  Sex: Female

DRUGS (1)
  1. PREMARIN [Suspect]
     Active Substance: ESTROGENS, CONJUGATED
     Dosage: 0.625 MG, 3 TIMES A WEEK (MON, WED, FRI)

REACTIONS (6)
  - Illness [Unknown]
  - Off label use [Unknown]
  - Poor quality product administered [Unknown]
  - Product use issue [Unknown]
  - Product packaging quantity issue [Unknown]
  - Product complaint [Unknown]
